FAERS Safety Report 15852356 (Version 2)
Quarter: 2019Q1

REPORT INFORMATION
  Report Type: Spontaneous
  Country: RO (occurrence: RO)
  Receive Date: 20190122
  Receipt Date: 20190128
  Transmission Date: 20190417
  Serious: Yes (Hospitalization, Other)
  Sender: FDA-Public Use
  Company Number: RO-AUROBINDO-AUR-APL-2019-001727

PATIENT
  Age: 54 Year
  Sex: Female

DRUGS (9)
  1. NADROPARIN [Suspect]
     Active Substance: NADROPARIN
     Indication: VASCULAR STENT THROMBOSIS
  2. HEPARIN [Suspect]
     Active Substance: HEPARIN SODIUM
     Indication: PRODUCT USED FOR UNKNOWN INDICATION
     Dosage: UNK
     Route: 065
  3. CLOPIDOGREL [Suspect]
     Active Substance: CLOPIDOGREL BISULFATE
     Indication: VASCULAR STENT THROMBOSIS
     Dosage: 75 MILLIGRAM, UNK
     Route: 065
  4. ACETYLSALICYLIC ACID [Suspect]
     Active Substance: ASPIRIN
     Indication: VASCULAR STENT THROMBOSIS
  5. CLOPIDOGREL [Suspect]
     Active Substance: CLOPIDOGREL BISULFATE
     Indication: THROMBOSIS
     Dosage: 150 MG, UNK
     Route: 065
  6. TICAGRELOR. [Suspect]
     Active Substance: TICAGRELOR
     Indication: PRODUCT USED FOR UNKNOWN INDICATION
     Dosage: UNK
     Route: 065
  7. NADROPARIN [Suspect]
     Active Substance: NADROPARIN
     Indication: THROMBOSIS
     Dosage: UNK
     Route: 065
  8. ACETYLSALICYLIC ACID [Suspect]
     Active Substance: ASPIRIN
     Indication: THROMBOSIS
     Dosage: 75 MG, UNK
     Route: 065
  9. DEXAMETHASONE. [Suspect]
     Active Substance: DEXAMETHASONE
     Indication: PRODUCT USED FOR UNKNOWN INDICATION
     Dosage: UNK
     Route: 065

REACTIONS (6)
  - Condition aggravated [Unknown]
  - Acute myocardial infarction [Recovered/Resolved]
  - Cardiac failure [Recovered/Resolved]
  - Bundle branch block right [Recovered/Resolved]
  - Thrombocytopenia [Not Recovered/Not Resolved]
  - Chest pain [Recovered/Resolved]
